FAERS Safety Report 7965849-7 (Version None)
Quarter: 2011Q4

REPORT INFORMATION
  Report Type: 
  Country: None (occurrence: None)
  Receive Date: 20111208
  Receipt Date: 20111202
  Transmission Date: 20120403
  Serious: Yes (Other)
  Sender: FDA-Public Use
  Company Number: US-BAYER-200934305NA

PATIENT
  Age: 66 Year
  Sex: Female

DRUGS (39)
  1. SYNTHROID [Concomitant]
     Dosage: 25 MCG, DAILY, LONG TERM MEDICAITON
  2. SODIUM BICARBONATE [Concomitant]
     Indication: PROPHYLAXIS
     Dosage: RENAL PROPHYLAXIS
     Route: 042
     Dates: start: 20060804
  3. LASIX [Concomitant]
  4. MAGNESIUM SULFATE [Concomitant]
     Dosage: 2 G, UNK
     Dates: start: 20060808
  5. SUCCINYLCHOLINE CHLORIDE [Concomitant]
     Dosage: 100 MG, UNK
     Dates: start: 20060808
  6. ANCEF [Concomitant]
     Dosage: 1 G, UNK
     Dates: start: 20060808
  7. COREG [Concomitant]
     Dosage: 12.5 MG, QD
     Route: 048
  8. ALTACE [Concomitant]
     Dosage: 5 MG, QD LONG TERM MEDICATION
  9. HEPARIN [Concomitant]
     Dosage: 45000 U, UNK
     Dates: start: 20060808
  10. FENTANYL [Concomitant]
     Dosage: 20 ML, UNK
     Dates: start: 20060808
  11. MORPHINE [Concomitant]
     Indication: PAIN
     Dosage: 1 MG, Q2HR
     Route: 042
  12. XANAX [Concomitant]
     Indication: ANXIETY
     Dosage: 1.25 MG, EVERY 6 HOURS PRN
     Route: 048
  13. NITROGLYCERIN [Concomitant]
     Dosage: 5 MCG/MIN
     Dates: start: 20060808
  14. PROTONIX [Concomitant]
     Dosage: 40 MG, QD LONG TERM MEDICATON
  15. PLAVIX [Concomitant]
  16. ISOFURANE [Concomitant]
     Dosage: UNK
     Dates: start: 20060808
  17. LEVOPHED [Concomitant]
     Dosage: DRIP INFUSION
     Dates: start: 20060808
  18. LIPITOR [Concomitant]
     Dosage: 40 MG, DAILY, LONG TERM MEDICATION
  19. ETOMIDATE [Concomitant]
     Dosage: 26 MG, UNK
     Dates: start: 20060808
  20. RED BLOOD CELLS [Concomitant]
     Dosage: 2 U, UNK
     Dates: start: 20060808
  21. TRASYLOL [Suspect]
     Indication: CORONARY ARTERY BYPASS
     Dosage: 1 ML, ONCE (INITIAL)
     Route: 042
     Dates: start: 20060808, end: 20060808
  22. TRASYLOL [Suspect]
     Dosage: 200 ML (LOADING)
     Route: 042
     Dates: start: 20060808, end: 20060808
  23. HUMALOG [Concomitant]
     Dosage: SLIDING SCALE, LONG TERM MEDICATION
  24. MUCOMYST [Concomitant]
     Indication: PROPHYLAXIS
     Dosage: RENAL PROPHYLAXIS
     Dates: start: 20060804
  25. LIDOCAINE [Concomitant]
     Dosage: 100 MG, UNK
     Dates: start: 20060808
  26. PRIMACOR [Concomitant]
     Dosage: 2 MG, UNK
     Route: 042
     Dates: start: 20060808
  27. NORVASC [Concomitant]
     Dosage: 2.5 MG, QD
     Route: 048
  28. RESTORIL [Concomitant]
     Indication: INSOMNIA
     Dosage: 15 MG, NIGHTLY AS PRN
     Route: 048
  29. LANTUS [Concomitant]
     Dosage: 25 U, HS LONG TERM MEDICATION
     Route: 058
  30. MIDAZOLAM [Concomitant]
     Dosage: 8 MG, UNK
     Dates: start: 20060808
  31. PANCURONIUM [Concomitant]
     Dosage: 16 MG, UNK
     Dates: start: 20060808
  32. INSULIN [Concomitant]
     Dosage: VARIABLE DRIP
     Dates: start: 20060808
  33. EPINEPHRINE [Concomitant]
     Dosage: DRIP INFUSION
     Dates: start: 20060808
  34. ASPIRIN [Concomitant]
     Dosage: 325 MG, QD
     Route: 048
  35. PERCOCET [OXYCODONE HYDROCHLORIDE,OXYCODONE TEREPHTHALATE,PARACETA [Concomitant]
     Indication: PAIN
     Dosage: 2 DF, PRN
     Route: 048
  36. TRASYLOL [Suspect]
     Dosage: 25 ML/HR, (INFUSION)
     Route: 042
     Dates: start: 20060808, end: 20060808
  37. VISIPAQUE [Concomitant]
     Dosage: UNK
     Dates: start: 20060804
  38. PROTAMINE SULFATE [Concomitant]
     Dosage: 550 MG, UNK
     Dates: start: 20060808
  39. VENTOLIN [Concomitant]
     Dosage: 6 PUFFS
     Route: 007
     Dates: start: 20060808

REACTIONS (37)
  - MULTI-ORGAN FAILURE [None]
  - INJURY [None]
  - ANXIETY [None]
  - FEAR [None]
  - UNEVALUABLE EVENT [None]
  - ANHEDONIA [None]
  - FALL [None]
  - URINARY TRACT INFECTION FUNGAL [None]
  - PLEURAL EFFUSION [None]
  - EMPHYSEMA [None]
  - CORONARY ARTERY OCCLUSION [None]
  - PAIN [None]
  - INCISION SITE CELLULITIS [None]
  - ACUTE CORONARY SYNDROME [None]
  - CARDIAC VALVE DISEASE [None]
  - RENAL FAILURE [None]
  - ATELECTASIS [None]
  - HAEMATURIA [None]
  - HAEMODIALYSIS [None]
  - POSTOPERATIVE WOUND INFECTION [None]
  - RENAL INJURY [None]
  - EMOTIONAL DISTRESS [None]
  - DEPRESSION [None]
  - NERVOUSNESS [None]
  - HYPOXIA [None]
  - MUSCULAR WEAKNESS [None]
  - ANAEMIA [None]
  - RESPIRATORY ACIDOSIS [None]
  - FLUID OVERLOAD [None]
  - CORONARY ARTERY DISEASE [None]
  - PULMONARY OEDEMA [None]
  - ASTHENIA [None]
  - ISCHAEMIC HEPATITIS [None]
  - CARDIAC FAILURE CONGESTIVE [None]
  - DISEASE PROGRESSION [None]
  - RENAL FAILURE ACUTE [None]
  - IN-STENT CORONARY ARTERY RESTENOSIS [None]
